FAERS Safety Report 5102869-4 (Version None)
Quarter: 2006Q3

REPORT INFORMATION
  Report Type: 
  Country: None (occurrence: None)
  Receive Date: 20060907
  Receipt Date: 20060821
  Transmission Date: 20061208
  Serious: Yes (Other)
  Sender: FDA-Public Use
  Company Number: 2006RR-03543

PATIENT
  Sex: Female

DRUGS (3)
  1. FLUOXETINE [Suspect]
  2. RISPERDAL [Suspect]
     Dosage: 3 MG, ORAL
     Route: 048
  3. AMITRIPTYLINE HCL [Concomitant]

REACTIONS (2)
  - BALANCE DISORDER [None]
  - BLOOD SODIUM DECREASED [None]
